FAERS Safety Report 25934411 (Version 1)
Quarter: 2025Q4

REPORT INFORMATION
  Report Type: Spontaneous
  Country: US (occurrence: US)
  Receive Date: 20251017
  Receipt Date: 20251017
  Transmission Date: 20260117
  Serious: Yes (Death)
  Sender: SECURA BIO
  Company Number: US-SECURA BIO, INC.-SECUR-2025-US002134

PATIENT
  Age: 55 Year
  Sex: Male

DRUGS (1)
  1. COPIKTRA [Suspect]
     Active Substance: DUVELISIB
     Indication: Product used for unknown indication
     Dosage: 75 MILLIGRAM, BID
     Route: 048
     Dates: start: 202410

REACTIONS (2)
  - Death [Fatal]
  - Product use issue [Unknown]

NARRATIVE: CASE EVENT DATE: 20241125
